FAERS Safety Report 21290157 (Version 3)
Quarter: 2025Q1

REPORT INFORMATION
  Report Type: Spontaneous
  Country: US (occurrence: US)
  Receive Date: 20220902
  Receipt Date: 20250224
  Transmission Date: 20250409
  Serious: Yes (Hospitalization, Other)
  Sender: UCB
  Company Number: US-UCBSA-2022052144

PATIENT
  Age: 27 Year
  Sex: Male
  Weight: 130 kg

DRUGS (2)
  1. FINTEPLA [Suspect]
     Active Substance: FENFLURAMINE
     Indication: Lennox-Gastaut syndrome
     Dosage: 2.7 MILLILITER, 2X/DAY (BID)
     Route: 048
  2. FINTEPLA [Suspect]
     Active Substance: FENFLURAMINE
     Dosage: 3.5 MILLILITER, 2X/DAY (BID)
     Route: 048

REACTIONS (1)
  - Pneumonia [Unknown]

NARRATIVE: CASE EVENT DATE: 20220825
